FAERS Safety Report 5125342-6 (Version None)
Quarter: 2006Q4

REPORT INFORMATION
  Report Type: 
  Country: None (occurrence: None)
  Receive Date: 20061006
  Receipt Date: 20060926
  Transmission Date: 20070319
  Serious: Yes (Hospitalization)
  Sender: FDA-Public Use
  Company Number: 163-21880-06091036

PATIENT
  Age: 77 Year
  Sex: Female

DRUGS (1)
  1. REVLIMID [Suspect]
     Indication: MYELOFIBROSIS
     Dosage: 5 - 10MG QD, ORAL
     Route: 048
     Dates: start: 20060619, end: 20060915

REACTIONS (3)
  - DIARRHOEA [None]
  - PERICARDIAL EFFUSION [None]
  - WEIGHT DECREASED [None]
